FAERS Safety Report 6237750-0 (Version None)
Quarter: 2009Q2

REPORT INFORMATION
  Report Type: 
  Country: None (occurrence: None)
  Receive Date: 20090618
  Receipt Date: 20090611
  Transmission Date: 20091009
  Serious: Yes (Hospitalization)
  Sender: FDA-Public Use
  Company Number: 2009PL000189

PATIENT
  Age: 53 Year
  Sex: Female
  Weight: 76.2043 kg

DRUGS (10)
  1. LOTRONEX [Suspect]
     Indication: DIARRHOEA
     Dosage: 1 MG; BID; PO
     Route: 048
     Dates: start: 20090112, end: 20090210
  2. LOTRONEX [Suspect]
     Indication: IRRITABLE BOWEL SYNDROME
     Dosage: 1 MG; BID; PO
     Route: 048
     Dates: start: 20090112, end: 20090210
  3. GLUCOPHAGE [Concomitant]
  4. LOTENSIN [Concomitant]
  5. TOPROL-XL [Concomitant]
  6. COLESTID [Concomitant]
  7. VYTORIN [Concomitant]
  8. LOMOTIL [Concomitant]
  9. CELEXA [Concomitant]
  10. JENUVIA [Concomitant]

REACTIONS (9)
  - BLOOD GLUCOSE INCREASED [None]
  - BLOOD LACTIC ACID INCREASED [None]
  - BLOOD UREA DECREASED [None]
  - COLITIS ISCHAEMIC [None]
  - DIVERTICULUM [None]
  - HEPATIC STEATOSIS [None]
  - LIPASE INCREASED [None]
  - SCAN ABDOMEN ABNORMAL [None]
  - UTERINE DISORDER [None]
